FAERS Safety Report 6882584-7 (Version None)
Quarter: 2010Q3

REPORT INFORMATION
  Report Type: 
  Country: None (occurrence: None)
  Receive Date: 20100729
  Receipt Date: 20100720
  Transmission Date: 20110219
  Serious: Yes (Hospitalization, Other)
  Sender: FDA-Public Use
  Company Number: US-ROCHE-674696

PATIENT
  Sex: Female
  Weight: 54.4 kg

DRUGS (2)
  1. ACCUTANE [Suspect]
     Indication: ACNE
     Route: 065
     Dates: start: 19861101, end: 19870401
  2. TETRACYCLINE [Concomitant]

REACTIONS (7)
  - ANAL FISSURE [None]
  - BLOOD ALKALINE PHOSPHATASE INCREASED [None]
  - COLITIS ULCERATIVE [None]
  - INFLAMMATORY BOWEL DISEASE [None]
  - MAJOR DEPRESSION [None]
  - NEPHROLITHIASIS [None]
  - PYODERMA GANGRENOSUM [None]
